FAERS Safety Report 23519721 (Version 1)
Quarter: 2024Q1

REPORT INFORMATION
  Report Type: Report from Study
  Country: JP (occurrence: JP)
  Receive Date: 20240213
  Receipt Date: 20240213
  Transmission Date: 20240410
  Serious: Yes (Hospitalization, Other)
  Sender: FDA-Public Use
  Company Number: JP-GSK-JP2019JPN032697

PATIENT

DRUGS (61)
  1. MEPOLIZUMAB [Suspect]
     Active Substance: MEPOLIZUMAB
     Indication: Eosinophilic granulomatosis with polyangiitis
     Dosage: 300 MG
     Route: 058
     Dates: start: 20190213, end: 20190213
  2. MEPOLIZUMAB [Suspect]
     Active Substance: MEPOLIZUMAB
     Dosage: 100 MG
     Route: 058
     Dates: start: 20190408, end: 20190408
  3. MEPOLIZUMAB [Suspect]
     Active Substance: MEPOLIZUMAB
     Dosage: 100 MG
     Route: 058
     Dates: start: 20190508, end: 20190508
  4. MEPOLIZUMAB [Suspect]
     Active Substance: MEPOLIZUMAB
     Dosage: 100 MG
     Route: 058
     Dates: start: 20190708, end: 20190708
  5. MEPOLIZUMAB [Suspect]
     Active Substance: MEPOLIZUMAB
     Dosage: 200 MG
     Route: 058
     Dates: start: 20190805, end: 20190805
  6. MEPOLIZUMAB [Suspect]
     Active Substance: MEPOLIZUMAB
     Dosage: 300 MG
     Route: 058
     Dates: start: 20190902, end: 20190902
  7. MEPOLIZUMAB [Suspect]
     Active Substance: MEPOLIZUMAB
     Dosage: 300 MG
     Route: 058
     Dates: start: 20191003, end: 20191003
  8. MEPOLIZUMAB [Suspect]
     Active Substance: MEPOLIZUMAB
     Dosage: 300 MG
     Route: 058
     Dates: start: 20191028, end: 20191028
  9. MEPOLIZUMAB [Suspect]
     Active Substance: MEPOLIZUMAB
     Dosage: 300 MG
     Route: 058
     Dates: start: 20191125, end: 20191125
  10. MEPOLIZUMAB [Suspect]
     Active Substance: MEPOLIZUMAB
     Dosage: 300 MG
     Route: 058
     Dates: start: 20191224, end: 20191224
  11. MEPOLIZUMAB [Suspect]
     Active Substance: MEPOLIZUMAB
     Dosage: 300 MG
     Route: 058
     Dates: start: 20200120, end: 20200120
  12. MEPOLIZUMAB [Suspect]
     Active Substance: MEPOLIZUMAB
     Dosage: 300 MG
     Route: 058
     Dates: start: 20200217, end: 20200217
  13. MEPOLIZUMAB [Suspect]
     Active Substance: MEPOLIZUMAB
     Dosage: 300 MG
     Route: 058
     Dates: start: 20200317, end: 20200317
  14. MEPOLIZUMAB [Suspect]
     Active Substance: MEPOLIZUMAB
     Dosage: 300 MG
     Route: 058
     Dates: start: 20200413, end: 20200413
  15. MEPOLIZUMAB [Suspect]
     Active Substance: MEPOLIZUMAB
     Dosage: 300 MG
     Route: 058
     Dates: start: 20200511, end: 20200511
  16. MEPOLIZUMAB [Suspect]
     Active Substance: MEPOLIZUMAB
     Dosage: 300 MG
     Route: 058
     Dates: start: 20200831, end: 20200831
  17. MEPOLIZUMAB [Suspect]
     Active Substance: MEPOLIZUMAB
     Dosage: 300 MG
     Route: 058
     Dates: start: 20200928, end: 20200928
  18. MEPOLIZUMAB [Suspect]
     Active Substance: MEPOLIZUMAB
     Dosage: 300 MG
     Route: 058
     Dates: start: 20201027, end: 20201027
  19. METHYLPREDNISOLONE [Suspect]
     Active Substance: METHYLPREDNISOLONE
     Indication: Eosinophilic granulomatosis with polyangiitis
     Dosage: 14 MG, QD
     Dates: end: 20190220
  20. METHYLPREDNISOLONE [Suspect]
     Active Substance: METHYLPREDNISOLONE
     Dosage: 18 MG, QD
     Dates: start: 20190221, end: 20190224
  21. METHYLPREDNISOLONE [Suspect]
     Active Substance: METHYLPREDNISOLONE
     Dosage: 16 MG, QD
     Dates: start: 20190225, end: 20190407
  22. METHYLPREDNISOLONE [Suspect]
     Active Substance: METHYLPREDNISOLONE
     Dosage: 14 MG, QD
     Dates: start: 20190408, end: 20190804
  23. METHYLPREDNISOLONE [Suspect]
     Active Substance: METHYLPREDNISOLONE
     Dosage: 13 MG, QD
     Dates: start: 20190805, end: 20190818
  24. METHYLPREDNISOLONE [Suspect]
     Active Substance: METHYLPREDNISOLONE
     Dosage: 12 MG, QD
     Dates: start: 20190819, end: 20190901
  25. METHYLPREDNISOLONE [Suspect]
     Active Substance: METHYLPREDNISOLONE
     Dosage: 10 MG, QD
     Dates: start: 20190902, end: 20200401
  26. METHYLPREDNISOLONE [Suspect]
     Active Substance: METHYLPREDNISOLONE
     Dosage: 9 MG, QD
     Dates: start: 20200402, end: 20200902
  27. METHYLPREDNISOLONE [Suspect]
     Active Substance: METHYLPREDNISOLONE
     Dosage: 7 MG, QD
     Dates: start: 20200903, end: 20200916
  28. METHYLPREDNISOLONE [Suspect]
     Active Substance: METHYLPREDNISOLONE
     Dosage: 6 MG, QD
     Dates: start: 20200917, end: 20200930
  29. METHYLPREDNISOLONE [Suspect]
     Active Substance: METHYLPREDNISOLONE
     Dosage: 5 MG, QD
     Dates: start: 20201001, end: 20201014
  30. METHYLPREDNISOLONE [Suspect]
     Active Substance: METHYLPREDNISOLONE
     Dosage: 4 MG, QD
     Dates: start: 20201015, end: 20201111
  31. METHYLPREDNISOLONE [Suspect]
     Active Substance: METHYLPREDNISOLONE
     Dosage: 3 MG, QD
     Dates: start: 20201112
  32. Immunoglobulin [Concomitant]
     Indication: Eosinophilic granulomatosis with polyangiitis
     Dosage: 15000 MG, QD
     Dates: start: 20190624, end: 20190624
  33. Immunoglobulin [Concomitant]
     Indication: Hypogammaglobulinaemia
     Dosage: 30000 MG, QD
     Dates: start: 20190718, end: 20190724
  34. Immunoglobulin [Concomitant]
     Dosage: 15000 MG, QD
     Dates: start: 20191125, end: 20191125
  35. Immunoglobulin [Concomitant]
     Dosage: 15000 MG, QD
     Dates: start: 20191225, end: 20191225
  36. Immunoglobulin [Concomitant]
     Dosage: 15000 MG, QD
     Dates: start: 20200305, end: 20200305
  37. Immunoglobulin [Concomitant]
     Dosage: 15000 MG, QD
     Dates: start: 20200817, end: 20200817
  38. Immunoglobulin [Concomitant]
     Dosage: 15000 MG, QD
     Dates: start: 20200923, end: 20200923
  39. Immunoglobulin [Concomitant]
     Dosage: 15000 MG, QD
     Dates: start: 20201104, end: 20201104
  40. ATOVAQUONE [Concomitant]
     Active Substance: ATOVAQUONE
     Indication: Antifungal prophylaxis
  41. MONTELUKAST [Concomitant]
     Active Substance: MONTELUKAST SODIUM
  42. FEBUXOSTAT [Concomitant]
     Active Substance: FEBUXOSTAT
  43. OLOPATADINE [Concomitant]
     Active Substance: OLOPATADINE
     Indication: Eosinophilic granulomatosis with polyangiitis
  44. ESOMEPRAZOLE [Concomitant]
     Active Substance: ESOMEPRAZOLE
     Indication: Prophylaxis against gastrointestinal ulcer
  45. MAGNESIUM OXIDE [Concomitant]
     Active Substance: MAGNESIUM OXIDE
  46. ALENDRONATE [Concomitant]
     Active Substance: ALENDRONATE SODIUM
     Indication: Osteoporosis prophylaxis
  47. OLMESARTAN [Concomitant]
     Active Substance: OLMESARTAN
  48. CALONAL [Concomitant]
     Active Substance: ACETAMINOPHEN
     Indication: Eosinophilic granulomatosis with polyangiitis
  49. SHAKUYAKUKANZOTO [Concomitant]
     Active Substance: HERBALS
     Indication: Muscle spasms
  50. PREGABALIN [Concomitant]
     Active Substance: PREGABALIN
     Indication: Eosinophilic granulomatosis with polyangiitis
  51. DULOXETINE [Concomitant]
     Active Substance: DULOXETINE
     Indication: Eosinophilic granulomatosis with polyangiitis
  52. RAMELTEON [Concomitant]
     Active Substance: RAMELTEON
     Indication: Insomnia
  53. TRAZODONE [Concomitant]
     Active Substance: TRAZODONE HYDROCHLORIDE
     Indication: Insomnia
  54. SUVOREXANT [Concomitant]
     Active Substance: SUVOREXANT
     Indication: Insomnia
  55. ALENDRONATE [Concomitant]
     Active Substance: ALENDRONATE SODIUM
     Indication: Osteoporosis prophylaxis
  56. SODIUM FERROUS CITRATE [Concomitant]
     Active Substance: SODIUM FERROUS CITRATE
  57. SPIRONOLACTONE [Concomitant]
     Active Substance: SPIRONOLACTONE
  58. POLAPREZINC [Concomitant]
     Active Substance: POLAPREZINC
     Indication: Zinc deficiency
  59. AMPHOTERICIN B [Concomitant]
     Active Substance: AMPHOTERICIN B
     Indication: Oral candidiasis
  60. TRAMADOL HYDROCHLORIDE [Concomitant]
     Active Substance: TRAMADOL HYDROCHLORIDE
     Indication: Osteoarthritis
  61. MIRTAZAPINE [Concomitant]
     Active Substance: MIRTAZAPINE
     Indication: Insomnia

REACTIONS (5)
  - Pneumonia [Recovered/Resolved]
  - Cellulitis [Recovered/Resolved]
  - Asthma [Recovered/Resolved]
  - Pyrexia [Not Recovered/Not Resolved]
  - Inappropriate schedule of product administration [Unknown]

NARRATIVE: CASE EVENT DATE: 20190201
